FAERS Safety Report 20153394 (Version 2)
Quarter: 2021Q4

REPORT INFORMATION
  Report Type: Spontaneous
  Country: US (occurrence: US)
  Receive Date: 20211206
  Receipt Date: 20211231
  Transmission Date: 20220304
  Serious: Yes (Other)
  Sender: FDA-Public Use
  Company Number: US-009507513-2112USA002002

PATIENT
  Age: 80 Year
  Sex: Male
  Weight: 74 kg

DRUGS (1)
  1. KEYTRUDA [Suspect]
     Active Substance: PEMBROLIZUMAB
     Indication: Prostate cancer stage IV
     Dosage: UNK

REACTIONS (4)
  - Immune-mediated myocarditis [Unknown]
  - Immune-mediated myositis [Unknown]
  - Myasthenia gravis [Unknown]
  - Product use in unapproved indication [Unknown]
